FAERS Safety Report 25107729 (Version 1)
Quarter: 2025Q1

REPORT INFORMATION
  Report Type: Spontaneous
  Country: US (occurrence: US)
  Receive Date: 20250322
  Receipt Date: 20250322
  Transmission Date: 20250409
  Serious: No
  Sender: ZYDUS PHARM
  Company Number: US-CADILA HEALTHCARE LIMITED-US-ZYDUS-119510

PATIENT

DRUGS (5)
  1. BOSENTAN [Suspect]
     Active Substance: BOSENTAN
     Indication: Pulmonary arterial hypertension
     Route: 048
     Dates: start: 20241210
  2. BENLYSTA [Concomitant]
     Active Substance: BELIMUMAB
     Indication: Product used for unknown indication
     Route: 065
  3. BETAMETHASONE ACETATE\BETAMETHASONE SODIUM PHOSPHATE [Concomitant]
     Active Substance: BETAMETHASONE ACETATE\BETAMETHASONE SODIUM PHOSPHATE
     Indication: Product used for unknown indication
     Route: 065
  4. INJECTAFER [Concomitant]
     Active Substance: FERRIC CARBOXYMALTOSE
     Indication: Product used for unknown indication
     Route: 065
  5. KENALOG [Concomitant]
     Active Substance: TRIAMCINOLONE ACETONIDE
     Indication: Product used for unknown indication
     Route: 065

REACTIONS (2)
  - Drug ineffective [Unknown]
  - Discomfort [Unknown]
